FAERS Safety Report 20032804 (Version 3)
Quarter: 2022Q1

REPORT INFORMATION
  Report Type: Spontaneous
  Country: JP (occurrence: JP)
  Receive Date: 20211104
  Receipt Date: 20220204
  Transmission Date: 20220423
  Serious: Yes (Other)
  Sender: FDA-Public Use
  Company Number: JP-TAKEDA-2021TJP112724

PATIENT
  Age: 63 Year
  Sex: Female
  Weight: 53 kg

DRUGS (6)
  1. ENTYVIO [Suspect]
     Active Substance: VEDOLIZUMAB
     Indication: Colitis ulcerative
     Dosage: 300 MILLIGRAM
     Route: 041
     Dates: start: 20190419, end: 20210924
  2. LANSOPRAZOLE [Concomitant]
     Active Substance: LANSOPRAZOLE
     Dosage: 15 MILLIGRAM, QD
     Route: 048
     Dates: start: 201709, end: 202109
  3. BIO-THREE [Concomitant]
     Active Substance: HERBALS
     Dosage: 3 DOSAGE FORM, TID
     Route: 048
     Dates: start: 202104, end: 202109
  4. CINAL [Concomitant]
     Dosage: 2 DOSAGE FORM, BID
     Route: 048
     Dates: start: 201709, end: 202109
  5. CYANOCOBALAMIN\PYRIDOXINE HYDROCHLORIDE\THIAMINE [Concomitant]
     Active Substance: CYANOCOBALAMIN\PYRIDOXINE HYDROCHLORIDE\THIAMINE
     Dosage: 2 DOSAGE FORM, BID
     Route: 048
     Dates: start: 201902, end: 202109
  6. ALLEGRA [Concomitant]
     Active Substance: FEXOFENADINE HYDROCHLORIDE
     Dosage: 2 DOSAGE FORM, BID
     Route: 048
     Dates: start: 201903, end: 202109

REACTIONS (1)
  - Lymphoma [Unknown]

NARRATIVE: CASE EVENT DATE: 20210901
